FAERS Safety Report 13032882 (Version 3)
Quarter: 2017Q1

REPORT INFORMATION
  Report Type: Spontaneous
  Country: US (occurrence: US)
  Receive Date: 20161215
  Receipt Date: 20170310
  Transmission Date: 20170428
  Serious: Yes (Death, Life-Threatening, Hospitalization, Other)
  Sender: FDA-Public Use
  Company Number: US-BRISTOL-MYERS SQUIBB COMPANY-BMS-2016-105705

PATIENT
  Sex: Male
  Weight: 81.64 kg

DRUGS (1)
  1. OPDIVO [Suspect]
     Active Substance: NIVOLUMAB
     Indication: PROSTATE CANCER
     Dosage: 240 MG, UNK
     Route: 042
     Dates: start: 20161122

REACTIONS (3)
  - Sepsis [Fatal]
  - Product use issue [Unknown]
  - Malignant neoplasm progression [Fatal]
